FAERS Safety Report 18663509 (Version 1)
Quarter: 2020Q4

REPORT INFORMATION
  Report Type: Spontaneous
  Country: IL (occurrence: IL)
  Receive Date: 20201224
  Receipt Date: 20201224
  Transmission Date: 20210114
  Serious: Yes (Death, Other)
  Sender: FDA-Public Use
  Company Number: IL-JAZZ-2020-IL-017416

PATIENT
  Age: 83 Year
  Sex: Male

DRUGS (1)
  1. ZEPZELCA [Suspect]
     Active Substance: LURBINECTEDIN
     Indication: SMALL CELL LUNG CANCER
     Dosage: TWO CYCLES

REACTIONS (4)
  - Death [Fatal]
  - Dyspnoea [Fatal]
  - Disease progression [Fatal]
  - Asthenia [Fatal]
